FAERS Safety Report 9836117 (Version 2)
Quarter: 2014Q1

REPORT INFORMATION
  Report Type: Spontaneous
  Country: CA (occurrence: CA)
  Receive Date: 20140123
  Receipt Date: 20140203
  Transmission Date: 20141002
  Serious: Yes (Other)
  Sender: FDA-Public Use
  Company Number: CA-AMGEN-CANSP2014003960

PATIENT
  Age: 15 Year
  Sex: Female
  Weight: 42.8 kg

DRUGS (5)
  1. ENBREL [Suspect]
     Indication: JUVENILE IDIOPATHIC ARTHRITIS
     Dosage: 32.5 MG, QWK
     Route: 058
     Dates: start: 20131215
  2. PREDNISONE [Concomitant]
     Dosage: 5 MG, QD
     Route: 048
  3. SULFASALAZINE [Concomitant]
     Dosage: 500 MG, QD
     Route: 048
  4. FOLIC ACID [Concomitant]
     Dosage: 5 MG, QD
  5. VITAMIN D                          /00107901/ [Concomitant]
     Dosage: 1000 IU, QD
     Route: 048

REACTIONS (7)
  - Tremor [Not Recovered/Not Resolved]
  - Chills [Not Recovered/Not Resolved]
  - Rash pruritic [Not Recovered/Not Resolved]
  - Rash erythematous [Not Recovered/Not Resolved]
  - Pruritus [Not Recovered/Not Resolved]
  - Rash papular [Not Recovered/Not Resolved]
  - Injection site pain [Not Recovered/Not Resolved]
